FAERS Safety Report 5226021-7 (Version None)
Quarter: 2007Q1

REPORT INFORMATION
  Report Type: 
  Country: None (occurrence: None)
  Receive Date: 20070129
  Receipt Date: 20070119
  Transmission Date: 20070707
  Serious: Yes (Other)
  Sender: FDA-Public Use
  Company Number: US-GDP-0613933

PATIENT
  Age: 70 Year
  Weight: 83.9154 kg

DRUGS (5)
  1. CAPEX (FLUOCINOLONE ACETONIDE) TOPICAL SHAMPOO, 0.01% (HILL) [Suspect]
     Indication: SEBORRHOEIC DERMATITIS
     Dosage: 1 APP ONCE TP
     Route: 064
     Dates: start: 20061213, end: 20061213
  2. CAPEX (FLUOCINOLONE ACETONIDE) TOPICAL SHAMPOO, 0.01% (HILL) [Suspect]
     Indication: SKIN EXFOLIATION
     Dosage: 1 APP ONCE TP
     Route: 064
     Dates: start: 20061213, end: 20061213
  3. CAPEX (FLUOCINOLONE ACETONIDE) TOPICAL SHAMPOO, 0.01% (HILL) [Suspect]
  4. SYNTHROID [Concomitant]
  5. TYLENOL W/ CODEINE NO. 3 [Concomitant]

REACTIONS (5)
  - CARDIAC FLUTTER [None]
  - DYSPNOEA [None]
  - HEART RATE INCREASED [None]
  - HYPOVENTILATION [None]
  - NAUSEA [None]
